FAERS Safety Report 19351643 (Version 11)
Quarter: 2022Q1

REPORT INFORMATION
  Report Type: Other
  Country: CA (occurrence: CA)
  Receive Date: 20210531
  Receipt Date: 20220215
  Transmission Date: 20220424
  Serious: Yes (Hospitalization, Disabling, Other)
  Sender: FDA-Public Use
  Company Number: CA-APOTEX-2021AP012499

PATIENT
  Age: 41 Year
  Sex: Female
  Weight: 90 kg

DRUGS (260)
  1. LEFLUNOMIDE [Suspect]
     Active Substance: LEFLUNOMIDE
     Indication: Product used for unknown indication
     Dosage: UNK
     Route: 048
  2. LEFLUNOMIDE [Suspect]
     Active Substance: LEFLUNOMIDE
     Dosage: UNK
     Route: 065
  3. LEFLUNOMIDE [Suspect]
     Active Substance: LEFLUNOMIDE
     Dosage: 20 MILLIGRAM
     Route: 048
  4. LEFLUNOMIDE [Suspect]
     Active Substance: LEFLUNOMIDE
     Dosage: 380 MILLIGRAM
     Route: 048
  5. LEFLUNOMIDE [Suspect]
     Active Substance: LEFLUNOMIDE
     Dosage: 500 MILLIGRAM
     Route: 048
  6. LEFLUNOMIDE [Suspect]
     Active Substance: LEFLUNOMIDE
     Dosage: 600 MILLIGRAM
     Route: 048
  7. LEFLUNOMIDE [Suspect]
     Active Substance: LEFLUNOMIDE
     Indication: Psoriatic arthropathy
     Dosage: UNK
     Route: 048
  8. LEFLUNOMIDE [Suspect]
     Active Substance: LEFLUNOMIDE
     Indication: Product used for unknown indication
     Dosage: 20 MILLIGRAM
     Route: 048
  9. LEFLUNOMIDE [Suspect]
     Active Substance: LEFLUNOMIDE
     Indication: Rheumatoid arthritis
     Dosage: 20 MILLIGRAM
     Route: 048
  10. LEFLUNOMIDE [Suspect]
     Active Substance: LEFLUNOMIDE
     Dosage: UNK
     Route: 065
  11. LEFLUNOMIDE [Suspect]
     Active Substance: LEFLUNOMIDE
     Dosage: 20 MILLIGRAM
     Route: 065
  12. LEFLUNOMIDE [Suspect]
     Active Substance: LEFLUNOMIDE
     Dosage: 20 MILLIGRAM
     Route: 065
  13. LEFLUNOMIDE [Suspect]
     Active Substance: LEFLUNOMIDE
     Dosage: UNK
     Route: 065
  14. LEFLUNOMIDE [Suspect]
     Active Substance: LEFLUNOMIDE
     Dosage: 20 MILLIGRAM
     Route: 048
  15. LEFLUNOMIDE [Suspect]
     Active Substance: LEFLUNOMIDE
     Dosage: 380 MILLIGRAM
     Route: 048
  16. LEFLUNOMIDE [Suspect]
     Active Substance: LEFLUNOMIDE
     Dosage: 20 MILLIGRAM, 21 EVERY 1 DAY
     Route: 048
  17. HYDROXYCHLOROQUINE [Suspect]
     Active Substance: HYDROXYCHLOROQUINE
     Indication: Rheumatoid arthritis
     Dosage: UNK
     Route: 065
  18. HYDROXYCHLOROQUINE [Suspect]
     Active Substance: HYDROXYCHLOROQUINE
     Indication: Product used for unknown indication
     Dosage: 200 MILLIGRAM, BID
     Route: 065
  19. HYDROXYCHLOROQUINE [Suspect]
     Active Substance: HYDROXYCHLOROQUINE
     Dosage: UNK
     Route: 048
  20. HYDROXYCHLOROQUINE [Suspect]
     Active Substance: HYDROXYCHLOROQUINE
     Dosage: 680 MILLIGRAM
     Route: 065
  21. HYDROXYCHLOROQUINE [Suspect]
     Active Substance: HYDROXYCHLOROQUINE
     Dosage: 200 MILLIGRAM, QD
     Route: 065
  22. HYDROXYCHLOROQUINE [Suspect]
     Active Substance: HYDROXYCHLOROQUINE
     Dosage: 20 MILLIGRAM, QD
     Route: 048
  23. HYDROXYCHLOROQUINE [Suspect]
     Active Substance: HYDROXYCHLOROQUINE
     Dosage: 200 MILLIGRAM
     Route: 065
  24. HYDROXYCHLOROQUINE [Suspect]
     Active Substance: HYDROXYCHLOROQUINE
     Dosage: 200 MILLIGRAM, QD
     Route: 048
  25. HYDROXYCHLOROQUINE [Suspect]
     Active Substance: HYDROXYCHLOROQUINE
     Dosage: 400 MILLIGRAM, QD
     Route: 065
  26. HYDROXYCHLOROQUINE [Suspect]
     Active Substance: HYDROXYCHLOROQUINE
     Dosage: 360 MILLIGRAM, Q.M.T.
     Route: 065
  27. HYDROXYCHLOROQUINE SULFATE [Suspect]
     Active Substance: HYDROXYCHLOROQUINE SULFATE
     Indication: Rheumatoid arthritis
     Dosage: UNK
     Route: 065
  28. AZATHIOPRINE [Suspect]
     Active Substance: AZATHIOPRINE
     Indication: Product used for unknown indication
     Dosage: UNK
     Route: 065
  29. ALENDRONATE [Suspect]
     Active Substance: ALENDRONATE SODIUM
     Indication: Product used for unknown indication
     Dosage: 70 MILLIGRAM, Q.I.W
     Route: 065
  30. ALENDRONATE [Suspect]
     Active Substance: ALENDRONATE SODIUM
     Dosage: 70 MILLIGRAM, Q.WK.
     Route: 065
  31. ALENDRONATE [Suspect]
     Active Substance: ALENDRONATE SODIUM
     Dosage: 70 MILLIGRAM 1 EVERY 4 WEEKS
     Route: 065
  32. ALENDRONATE [Suspect]
     Active Substance: ALENDRONATE SODIUM
     Dosage: 70 MILLIGRAM
     Route: 065
  33. ALENDRONATE [Suspect]
     Active Substance: ALENDRONATE SODIUM
     Dosage: UNK
     Route: 048
  34. CYCLOSPORINE [Suspect]
     Active Substance: CYCLOSPORINE
     Indication: Product used for unknown indication
     Dosage: UNK
     Route: 048
  35. CYCLOSPORINE [Suspect]
     Active Substance: CYCLOSPORINE
     Dosage: UNK
     Route: 065
  36. CYCLOSPORINE [Suspect]
     Active Substance: CYCLOSPORINE
     Indication: Psoriatic arthropathy
     Dosage: UNK
     Route: 065
  37. IBUPROFEN [Suspect]
     Active Substance: IBUPROFEN
     Indication: Product used for unknown indication
     Dosage: 600 MILLIGRAM, QD
     Route: 048
  38. IBUPROFEN [Suspect]
     Active Substance: IBUPROFEN
     Dosage: UNK
     Route: 048
  39. IBUPROFEN [Suspect]
     Active Substance: IBUPROFEN
     Dosage: 6 DOSAGE FORM, QD
     Route: 065
  40. IBUPROFEN [Suspect]
     Active Substance: IBUPROFEN
     Dosage: 60 MILLIGRAM
     Route: 048
  41. IBUPROFEN [Suspect]
     Active Substance: IBUPROFEN
     Indication: Product used for unknown indication
     Dosage: 600 MILLIGRAM, Q.4H.
     Route: 048
  42. IBUPROFEN [Suspect]
     Active Substance: IBUPROFEN
     Dosage: 600 MILLIGRAM, Q.4H.
     Route: 048
  43. IBUPROFEN [Suspect]
     Active Substance: IBUPROFEN
     Dosage: UNK UNK, QD
     Route: 048
  44. IBUPROFEN [Suspect]
     Active Substance: IBUPROFEN
     Dosage: 600 MILLIGRAM
     Route: 048
  45. IBUPROFEN [Suspect]
     Active Substance: IBUPROFEN
     Dosage: 600 MILLIGRAM, QD
     Route: 048
  46. IBUPROFEN [Suspect]
     Active Substance: IBUPROFEN
     Dosage: UNK
     Route: 065
  47. IBUPROFEN [Suspect]
     Active Substance: IBUPROFEN
     Dosage: 600 MILLIGRAM, 6 EVERY 1 DAY
     Route: 048
  48. IBUPROFEN [Suspect]
     Active Substance: IBUPROFEN
     Dosage: 6 DOSAGE FORM, QD
     Route: 065
  49. SULFASALAZINE [Suspect]
     Active Substance: SULFASALAZINE
     Indication: Rheumatoid arthritis
     Dosage: 1 GRAM, BID
     Route: 048
  50. SULFASALAZINE [Suspect]
     Active Substance: SULFASALAZINE
     Indication: Psoriatic arthropathy
     Dosage: UNK
     Route: 065
  51. SULFASALAZINE [Suspect]
     Active Substance: SULFASALAZINE
     Indication: Psoriasis
     Dosage: 500 MILLIGRAM
     Route: 065
  52. ABATACEPT [Suspect]
     Active Substance: ABATACEPT
     Indication: Psoriatic arthropathy
     Dosage: UNK
     Route: 065
  53. ACTEMRA [Suspect]
     Active Substance: TOCILIZUMAB
     Indication: Rheumatoid arthritis
     Dosage: 680 MILLIGRAM
     Route: 065
  54. ACTEMRA [Suspect]
     Active Substance: TOCILIZUMAB
     Dosage: 360 MILLIGRAM
     Route: 065
  55. ACTEMRA [Suspect]
     Active Substance: TOCILIZUMAB
     Dosage: 680 MILLIGRAM. ONCE IN 4 WEEK
     Route: 065
  56. ACTEMRA [Suspect]
     Active Substance: TOCILIZUMAB
     Dosage: 680 MILLIGRAM, ONCE IN 4 WEEKS
     Route: 042
  57. ACTEMRA [Suspect]
     Active Substance: TOCILIZUMAB
     Dosage: 8 MILLIGRAM
     Route: 065
  58. ACTEMRA [Suspect]
     Active Substance: TOCILIZUMAB
     Dosage: 680 MILLIGRAM, Q.M.T.
     Route: 065
  59. ACTEMRA [Suspect]
     Active Substance: TOCILIZUMAB
     Dosage: 2.68 MILLIGRAM, ONCE IN 4 WEEKS
     Route: 065
  60. ACTEMRA [Suspect]
     Active Substance: TOCILIZUMAB
     Dosage: 360 MILLIGRAM, Q.M.T.
     Route: 042
  61. ACTEMRA [Suspect]
     Active Substance: TOCILIZUMAB
     Dosage: 2.68 MILLIGRAM, ONCE IN 4 WEEKS
     Route: 042
  62. ADALIMUMAB [Suspect]
     Active Substance: ADALIMUMAB
     Indication: Psoriatic arthropathy
     Dosage: 40 MILLIGRAM
     Route: 058
  63. ADALIMUMAB [Suspect]
     Active Substance: ADALIMUMAB
     Indication: Rheumatoid arthritis
     Dosage: 40 MILLIGRAM, ONCE IN 2 WEEKS
     Route: 058
  64. ADALIMUMAB [Suspect]
     Active Substance: ADALIMUMAB
     Dosage: 40 MILLIGRAM, CYCLICAL
     Route: 058
  65. ADALIMUMAB [Suspect]
     Active Substance: ADALIMUMAB
     Dosage: 40 MILLIGRAM
     Route: 058
  66. ADALIMUMAB [Suspect]
     Active Substance: ADALIMUMAB
     Dosage: UNK
     Route: 058
  67. APREMILAST [Suspect]
     Active Substance: APREMILAST
     Indication: Rheumatoid arthritis
     Dosage: UNK
     Route: 065
  68. APREMILAST [Suspect]
     Active Substance: APREMILAST
     Indication: Psoriatic arthropathy
     Dosage: 60 MILLIGRAM, BID
     Route: 065
  69. APREMILAST [Suspect]
     Active Substance: APREMILAST
     Indication: Psoriasis
     Dosage: 30 MILLIGRAM, BID
     Route: 065
  70. APREMILAST [Suspect]
     Active Substance: APREMILAST
     Dosage: 300 MILLIGRAM
     Route: 048
  71. APREMILAST [Suspect]
     Active Substance: APREMILAST
     Dosage: 600 UNK
     Route: 065
  72. METHOTREXATE [Suspect]
     Active Substance: METHOTREXATE
     Indication: Rheumatoid arthritis
     Dosage: 2.5 MILLIGRAM, Q.WK.
     Route: 065
  73. METHOTREXATE [Suspect]
     Active Substance: METHOTREXATE
     Indication: Product used for unknown indication
     Dosage: 12.5 MILLIGRAM, Q.I.W
     Route: 065
  74. METHOTREXATE [Suspect]
     Active Substance: METHOTREXATE
     Dosage: UNK
     Route: 048
  75. METHOTREXATE [Suspect]
     Active Substance: METHOTREXATE
     Dosage: 12.5 MILLIGRAM, Q.I.W
     Route: 065
  76. METHOTREXATE [Suspect]
     Active Substance: METHOTREXATE
     Dosage: 2.5 MILLIGRAM, Q.WK.
     Route: 048
  77. METHOTREXATE [Suspect]
     Active Substance: METHOTREXATE
     Dosage: 10 MILLIGRAM, Q.I.W
     Route: 048
  78. METHOTREXATE [Suspect]
     Active Substance: METHOTREXATE
     Dosage: 10 MILLIGRAM, Q.WK.
     Route: 048
  79. METHOTREXATE [Suspect]
     Active Substance: METHOTREXATE
     Dosage: 7.5 MILLIGRAM, QD
     Route: 048
  80. METHOTREXATE [Suspect]
     Active Substance: METHOTREXATE
     Dosage: 17.5 MILLIGRAM, Q.I.W
     Route: 048
  81. METHOTREXATE [Suspect]
     Active Substance: METHOTREXATE
     Dosage: 15 MILLIGRAM, Q.WK.
     Route: 065
  82. METHOTREXATE [Suspect]
     Active Substance: METHOTREXATE
     Dosage: 4 DOSAGE FORM, Q.WK.
     Route: 048
  83. METHOTREXATE [Suspect]
     Active Substance: METHOTREXATE
     Dosage: 10 DOSAGE FORM, Q.WK.
     Route: 065
  84. METHOTREXATE [Suspect]
     Active Substance: METHOTREXATE
     Dosage: 10 DOSAGE FORM, Q.WK.
     Route: 065
  85. METHOTREXATE [Suspect]
     Active Substance: METHOTREXATE
     Dosage: 25 MILLIGRAM, Q.WK.
     Route: 048
  86. METHOTREXATE [Suspect]
     Active Substance: METHOTREXATE
     Dosage: 12.5 MILLIGRAM, Q.WK.
     Route: 048
  87. METHOTREXATE [Suspect]
     Active Substance: METHOTREXATE
     Dosage: 12 MILLIGRAM, ONCE IN 4 WEEK
     Route: 065
  88. METHOTREXATE [Suspect]
     Active Substance: METHOTREXATE
     Dosage: 12 MILLIGRAM, ONCE IN 4 WEEK
     Route: 048
  89. METHOTREXATE [Suspect]
     Active Substance: METHOTREXATE
     Dosage: 12 MILLIGRAM, ONCE IN 4 WEEK
     Route: 048
  90. ARAVA [Suspect]
     Active Substance: LEFLUNOMIDE
     Indication: Rheumatoid arthritis
     Dosage: 20 MILLIGRAM, BID
     Route: 048
  91. ARAVA [Suspect]
     Active Substance: LEFLUNOMIDE
     Dosage: 200 MILLIGRAM, QID
     Route: 048
  92. ARAVA [Suspect]
     Active Substance: LEFLUNOMIDE
     Dosage: 20 MILLIGRAM, QD
     Route: 048
  93. BENADRYL [Suspect]
     Active Substance: DIPHENHYDRAMINE HYDROCHLORIDE
     Indication: Product used for unknown indication
     Dosage: UNK
     Route: 065
  94. CELEBREX [Suspect]
     Active Substance: CELECOXIB
     Indication: Adenomatous polyposis coli
     Dosage: 200 MILLIGRAM, BID
     Route: 048
  95. CELEBREX [Suspect]
     Active Substance: CELECOXIB
     Indication: Rheumatoid arthritis
     Dosage: 499 MILLIGRAM, QD
     Route: 048
  96. CELEBREX [Suspect]
     Active Substance: CELECOXIB
     Dosage: UNK
     Route: 065
  97. CELEBREX [Suspect]
     Active Substance: CELECOXIB
     Dosage: 400 MILLIGRAM, QD
     Route: 048
  98. CYCLOSPORINE [Suspect]
     Active Substance: CYCLOSPORINE
     Indication: Psoriatic arthropathy
     Dosage: UNK
     Route: 065
  99. CYCLOSPORINE [Suspect]
     Active Substance: CYCLOSPORINE
     Indication: Product used for unknown indication
     Dosage: UNK
     Route: 048
  100. CYCLOSPORINE [Suspect]
     Active Substance: CYCLOSPORINE
     Indication: Rheumatoid arthritis
     Dosage: UNK
     Route: 065
  101. CYCLOSPORINE [Suspect]
     Active Substance: CYCLOSPORINE
     Dosage: 150 MILLIGRAM, Q.WK.
     Route: 065
  102. CYCLOSPORINE [Suspect]
     Active Substance: CYCLOSPORINE
     Dosage: 150 MILLIGRAM, QD
     Route: 065
  103. CYCLOSPORINE [Suspect]
     Active Substance: CYCLOSPORINE
     Dosage: 150 MILLIGRAM, ONCE IN 24 HOURS
     Route: 065
  104. CIMZIA [Suspect]
     Active Substance: CERTOLIZUMAB PEGOL
     Indication: Psoriatic arthropathy
     Dosage: UNK
     Route: 065
  105. CIMZIA [Suspect]
     Active Substance: CERTOLIZUMAB PEGOL
     Dosage: UNK
     Route: 058
  106. CIMZIA [Suspect]
     Active Substance: CERTOLIZUMAB PEGOL
     Dosage: UNK
     Route: 058
  107. CODEINE [Suspect]
     Active Substance: CODEINE
     Indication: Product used for unknown indication
     Dosage: UNK
     Route: 065
  108. COSENTYX [Suspect]
     Active Substance: SECUKINUMAB
     Indication: Psoriatic arthropathy
     Dosage: 300 MILLIGRAM, Q.M.T.
     Route: 058
  109. COSENTYX [Suspect]
     Active Substance: SECUKINUMAB
     Dosage: UNK
     Route: 065
  110. ENBREL [Suspect]
     Active Substance: ETANERCEPT
     Indication: Rheumatoid arthritis
     Dosage: UNK
     Route: 065
  111. ENBREL [Suspect]
     Active Substance: ETANERCEPT
     Indication: Psoriatic arthropathy
     Dosage: 25 MILLIGRAM
     Route: 058
  112. ENBREL [Suspect]
     Active Substance: ETANERCEPT
     Indication: Psoriasis
     Dosage: 50 MILLIGRAM, Q.WK.
     Route: 058
  113. ENBREL [Suspect]
     Active Substance: ETANERCEPT
     Dosage: 25 MILLIGRAM, B.I.WK.
     Route: 058
  114. ENBREL [Suspect]
     Active Substance: ETANERCEPT
     Dosage: 20 MILLIGRAM, QD
     Route: 065
  115. ENBREL [Suspect]
     Active Substance: ETANERCEPT
     Dosage: UNK
     Route: 058
  116. ENBREL [Suspect]
     Active Substance: ETANERCEPT
     Dosage: 25 MILLIGRAM, B.I.WK.
     Route: 065
  117. ENBREL [Suspect]
     Active Substance: ETANERCEPT
     Dosage: 25 MILLIGRAM
     Route: 065
  118. ENBREL [Suspect]
     Active Substance: ETANERCEPT
     Dosage: 50 MILLIGRAM, B.I.WK.
     Route: 065
  119. ENBREL [Suspect]
     Active Substance: ETANERCEPT
     Dosage: 25 MILLIGRAM, Q.WK.
     Route: 058
  120. ENBREL [Suspect]
     Active Substance: ETANERCEPT
     Dosage: 25 MILLIGRAM, Q.WK.
     Route: 065
  121. ENBREL [Suspect]
     Active Substance: ETANERCEPT
     Dosage: 25 MILLIGRAM, Q.O.WK.
     Route: 058
  122. ETANERCEPT [Suspect]
     Active Substance: ETANERCEPT
     Indication: Rheumatoid arthritis
     Dosage: UNK
     Route: 065
  123. ETANERCEPT [Suspect]
     Active Substance: ETANERCEPT
     Indication: Psoriatic arthropathy
     Dosage: 25 MILLIGRAM, Q.WK.
     Route: 058
  124. ETANERCEPT [Suspect]
     Active Substance: ETANERCEPT
     Indication: Psoriasis
     Dosage: UNK
     Route: 058
  125. ETANERCEPT [Suspect]
     Active Substance: ETANERCEPT
     Dosage: 25 MILLIGRAM, B.I.WK.
     Route: 065
  126. ETANERCEPT [Suspect]
     Active Substance: ETANERCEPT
     Dosage: 50 MILLIGRAM, Q.WK.
     Route: 065
  127. HUMIRA [Suspect]
     Active Substance: ADALIMUMAB
     Indication: Rheumatoid arthritis
     Dosage: 40 MILLIGRAM
     Route: 058
  128. HUMIRA [Suspect]
     Active Substance: ADALIMUMAB
     Indication: Psoriatic arthropathy
     Dosage: UNK
     Route: 058
  129. HUMIRA [Suspect]
     Active Substance: ADALIMUMAB
     Dosage: 40 MILLIGRAM, Q.I.W
     Route: 058
  130. HUMIRA [Suspect]
     Active Substance: ADALIMUMAB
     Dosage: 40 MILLIGRAM, ONCE IN 2 WEEKS
     Route: 058
  131. HUMIRA [Suspect]
     Active Substance: ADALIMUMAB
     Dosage: 40 MILLIGRAM, CYCLICAL
     Route: 058
  132. HUMIRA [Suspect]
     Active Substance: ADALIMUMAB
     Dosage: 40 DOSAGE FORM
     Route: 058
  133. HUMIRA [Suspect]
     Active Substance: ADALIMUMAB
     Dosage: 40 MILLIGRAM, Q.WK.
     Route: 058
  134. INFLIXIMAB [Suspect]
     Active Substance: INFLIXIMAB
     Indication: Psoriatic arthropathy
     Dosage: UNK
     Route: 048
  135. INFLIXIMAB [Suspect]
     Active Substance: INFLIXIMAB
     Indication: Rheumatoid arthritis
     Dosage: 300 MILLIGRAM
     Route: 042
  136. INFLIXIMAB [Suspect]
     Active Substance: INFLIXIMAB
     Dosage: 400 MILLIGRAM
     Route: 042
  137. INFLIXIMAB [Suspect]
     Active Substance: INFLIXIMAB
     Dosage: UNK
     Route: 058
  138. INFLIXIMAB [Suspect]
     Active Substance: INFLIXIMAB
     Dosage: UNK
     Route: 042
  139. METHOTREXATE [Suspect]
     Active Substance: METHOTREXATE
     Indication: Product used for unknown indication
     Dosage: 10 MILLIGRAM, Q.I.W
     Route: 058
  140. METHOTREXATE [Suspect]
     Active Substance: METHOTREXATE
     Indication: Rheumatoid arthritis
     Dosage: 12.5 MILLIGRAM, Q.WK.
     Route: 058
  141. METHOTREXATE [Suspect]
     Active Substance: METHOTREXATE
     Dosage: 15 MILLIGRAM, Q.I.W
     Route: 058
  142. METHOTREXATE [Suspect]
     Active Substance: METHOTREXATE
     Dosage: 17.5 MILLIGRAM, Q.I.W
     Route: 058
  143. METHOTREXATE [Suspect]
     Active Substance: METHOTREXATE
     Dosage: 12.5 MILLIGRAM, QD
     Route: 058
  144. METHOTREXATE [Suspect]
     Active Substance: METHOTREXATE
     Dosage: 15 MILLIGRAM, Q.WK.
     Route: 058
  145. METHOTREXATE [Suspect]
     Active Substance: METHOTREXATE
     Dosage: 70 MILLIGRAM, Q.WK.
     Route: 058
  146. METHOTREXATE [Suspect]
     Active Substance: METHOTREXATE
     Dosage: 10 MILLIGRAM, Q.WK.
     Route: 058
  147. METHOTREXATE [Suspect]
     Active Substance: METHOTREXATE
     Dosage: 17.5 MILLIGRAM, Q.WK.
     Route: 058
  148. METHOTREXATE [Suspect]
     Active Substance: METHOTREXATE
     Dosage: 12 MILLIGRAM, Q.WK.
     Route: 058
  149. METHOTREXATE [Suspect]
     Active Substance: METHOTREXATE
     Dosage: 12.5 MILLIGRAM, Q.WK.
     Route: 058
  150. METHOTREXATE [Suspect]
     Active Substance: METHOTREXATE
     Dosage: 70 MILLIGRAM, 1 EVERY 4 WEEKS
     Route: 058
  151. METHOTREXATE [Suspect]
     Active Substance: METHOTREXATE
     Dosage: 12 MILLIGRAM, 1 EVERY 4 WEKS
     Route: 058
  152. METHOTREXATE [Suspect]
     Active Substance: METHOTREXATE
     Dosage: 10 MILLIGRAM, 1 EVERY 4 WEKS
     Route: 058
  153. METHOTREXATE [Suspect]
     Active Substance: METHOTREXATE
     Dosage: 12.5 MILLIGRAM, 1 EVERY 4 WEKS
     Route: 058
  154. METHOTREXATE [Suspect]
     Active Substance: METHOTREXATE
     Dosage: 15 MILLIGRAM, 1 EVERY 4 WEKS
     Route: 058
  155. METHOTREXATE [Suspect]
     Active Substance: METHOTREXATE
     Dosage: 17.5 MILLIGRAM, 1 EVERY 4 WEEKS
     Route: 058
  156. METHOTREXATE [Suspect]
     Active Substance: METHOTREXATE
     Dosage: 15.5 MILLIGRAM, Q.WK.
     Route: 058
  157. MOTRIN [Suspect]
     Active Substance: IBUPROFEN
     Indication: Product used for unknown indication
     Dosage: UNK UNK, QD
     Route: 048
  158. MOTRIN [Suspect]
     Active Substance: IBUPROFEN
     Dosage: 600 MILLIGRAM, Q.4H.
     Route: 048
  159. MOTRIN [Suspect]
     Active Substance: IBUPROFEN
     Dosage: 6 DOSAGE FORM, QD
     Route: 065
  160. MOTRIN [Suspect]
     Active Substance: IBUPROFEN
     Dosage: 600 MILLIGRAM, QD
     Route: 048
  161. MOTRIN [Suspect]
     Active Substance: IBUPROFEN
     Dosage: 600 MILLIGRAM, Q.4H.
     Route: 048
  162. MOTRIN [Suspect]
     Active Substance: IBUPROFEN
     Dosage: 600 MILLIGRAM
     Route: 048
  163. ORENCIA [Suspect]
     Active Substance: ABATACEPT
     Indication: Rheumatoid arthritis
     Dosage: UNK
     Route: 065
  164. ORENCIA [Suspect]
     Active Substance: ABATACEPT
     Indication: Psoriatic arthropathy
     Dosage: UNK
     Route: 058
  165. OTEZLA [Suspect]
     Active Substance: APREMILAST
     Indication: Rheumatoid arthritis
     Dosage: UNK
     Route: 065
  166. OTEZLA [Suspect]
     Active Substance: APREMILAST
     Indication: Psoriatic arthropathy
     Dosage: 60 MILLIGRAM, BID
     Route: 048
  167. OTEZLA [Suspect]
     Active Substance: APREMILAST
     Indication: Psoriasis
     Dosage: 30 MILLIGRAM, BID
     Route: 048
  168. OTEZLA [Suspect]
     Active Substance: APREMILAST
     Dosage: 30 UNK
     Route: 048
  169. OTEZLA [Suspect]
     Active Substance: APREMILAST
     Dosage: 300 MILLIGRAM
     Route: 048
  170. OTEZLA [Suspect]
     Active Substance: APREMILAST
     Dosage: 60 MILLIGRAM, QD
     Route: 048
  171. OTEZLA [Suspect]
     Active Substance: APREMILAST
     Dosage: 60 MILLIGRAM, BID
     Route: 065
  172. OTEZLA [Suspect]
     Active Substance: APREMILAST
     Dosage: 120 MILLIGRAM, QD
     Route: 048
  173. PLAQUENIL [Suspect]
     Active Substance: HYDROXYCHLOROQUINE SULFATE
     Indication: Product used for unknown indication
     Dosage: UNK
     Route: 065
  174. REMICADE [Suspect]
     Active Substance: INFLIXIMAB
     Indication: Product used for unknown indication
     Dosage: 400 MILLIGRAM
     Route: 042
  175. REMICADE [Suspect]
     Active Substance: INFLIXIMAB
     Indication: Psoriatic arthropathy
     Dosage: UNK
     Route: 042
  176. REMICADE [Suspect]
     Active Substance: INFLIXIMAB
     Dosage: UNK
     Route: 058
  177. RITUXAN [Suspect]
     Active Substance: RITUXIMAB
     Indication: Rheumatoid arthritis
     Dosage: 1000 MILLIGRAM, BID
     Route: 042
  178. RITUXAN [Suspect]
     Active Substance: RITUXIMAB
     Indication: Psoriatic arthropathy
     Dosage: 1000 MILLIGRAM, BID
     Route: 065
  179. SIMPONI [Suspect]
     Active Substance: GOLIMUMAB
     Indication: Psoriatic arthropathy
     Dosage: UNK
     Route: 058
  180. SIMPONI [Suspect]
     Active Substance: GOLIMUMAB
     Indication: Product used for unknown indication
     Dosage: UNK
     Route: 058
  181. SIMPONI [Suspect]
     Active Substance: GOLIMUMAB
     Dosage: UNK
     Route: 065
  182. SIMPONI [Suspect]
     Active Substance: GOLIMUMAB
     Dosage: UNK
     Route: 058
  183. STELARA [Suspect]
     Active Substance: USTEKINUMAB
     Indication: Psoriatic arthropathy
     Dosage: UNK
     Route: 065
  184. STELARA [Suspect]
     Active Substance: USTEKINUMAB
     Indication: Product used for unknown indication
     Dosage: UNK
     Route: 058
  185. STELARA [Suspect]
     Active Substance: USTEKINUMAB
     Dosage: UNK
     Route: 058
  186. STELARA [Suspect]
     Active Substance: USTEKINUMAB
     Dosage: UNK
     Route: 058
  187. STELARA [Suspect]
     Active Substance: USTEKINUMAB
     Dosage: 600 MILLIGRAM
     Route: 048
  188. SULFAMETHOXAZOLE [Suspect]
     Active Substance: SULFAMETHOXAZOLE
     Indication: Product used for unknown indication
     Dosage: 600 MILLIGRAM
     Route: 048
  189. CERTOLIZUMAB PEGOL [Suspect]
     Active Substance: CERTOLIZUMAB PEGOL
     Indication: Psoriatic arthropathy
     Dosage: UNK
     Route: 058
  190. ERELZI [Suspect]
     Active Substance: ETANERCEPT-SZZS
     Indication: Rheumatoid arthritis
     Dosage: 50 MILLIGRAM, Q.WK.
     Route: 065
  191. ERELZI [Suspect]
     Active Substance: ETANERCEPT-SZZS
     Indication: Psoriatic arthropathy
     Dosage: 25 MILLIGRAM
     Route: 058
  192. ERELZI [Suspect]
     Active Substance: ETANERCEPT-SZZS
     Indication: Psoriasis
     Dosage: 25 MILLIGRAM
     Route: 065
  193. FOSAMAX [Suspect]
     Active Substance: ALENDRONATE SODIUM
     Indication: Product used for unknown indication
     Dosage: 70 MILLIGRAM, Q.WK.
     Route: 065
  194. RITUXIMAB [Suspect]
     Active Substance: RITUXIMAB
     Indication: Rheumatoid arthritis
     Dosage: 1000 MILLIGRAM
     Route: 065
  195. RITUXIMAB [Suspect]
     Active Substance: RITUXIMAB
     Indication: Psoriatic arthropathy
     Dosage: 1000 MILLIGRAM
     Route: 042
  196. RITUXIMAB [Suspect]
     Active Substance: RITUXIMAB
     Dosage: UNK UNK, QD
     Route: 065
  197. RITUXIMAB [Suspect]
     Active Substance: RITUXIMAB
     Dosage: UNK UNK, QD
     Route: 042
  198. RITUXIMAB [Suspect]
     Active Substance: RITUXIMAB
     Dosage: 2000 MILLIGRAM, QD
     Route: 065
  199. RITUXIMAB [Suspect]
     Active Substance: RITUXIMAB
     Dosage: 1000 MILLIGRAM, BID
     Route: 042
  200. RITUXIMAB [Suspect]
     Active Substance: RITUXIMAB
     Dosage: 1000 MILLIGRAM, Q.12H
     Route: 065
  201. RITUXIMAB [Suspect]
     Active Substance: RITUXIMAB
     Dosage: 1000 MILLIGRAM, BID
     Route: 065
  202. RITUXIMAB [Suspect]
     Active Substance: RITUXIMAB
     Dosage: 1000 MILLIGRAM, QD
     Route: 065
  203. RITUXIMAB [Suspect]
     Active Substance: RITUXIMAB
     Dosage: 1000 MILLIGRAM, BID
     Route: 042
  204. RITUXIMAB [Suspect]
     Active Substance: RITUXIMAB
     Dosage: 1000 UNK, ONCE IN 24 HOURS
     Route: 065
  205. RITUXIMAB [Suspect]
     Active Substance: RITUXIMAB
     Dosage: 100 MILLIGRAM, BID
     Route: 042
  206. RITUXIMAB [Suspect]
     Active Substance: RITUXIMAB
     Dosage: 1000 MILLIGRAM
     Route: 065
  207. RITUXIMAB [Suspect]
     Active Substance: RITUXIMAB
     Dosage: 1000 MILLIGRAM, BID
     Route: 042
  208. RITUXIMAB [Suspect]
     Active Substance: RITUXIMAB
     Dosage: 1000 MILLIGRAM, BID
     Route: 042
  209. RITUXIMAB [Suspect]
     Active Substance: RITUXIMAB
     Dosage: UNK UNK, Q.12H
     Route: 042
  210. TOCILIZUMAB [Suspect]
     Active Substance: TOCILIZUMAB
     Indication: Rheumatoid arthritis
     Dosage: 360 MILLIGRAM
     Route: 065
  211. USTEKINUMAB [Suspect]
     Active Substance: USTEKINUMAB
     Indication: Psoriatic arthropathy
     Dosage: 600 MILLIGRAM
     Route: 048
  212. USTEKINUMAB [Suspect]
     Active Substance: USTEKINUMAB
     Indication: Product used for unknown indication
     Dosage: UNK
     Route: 058
  213. USTEKINUMAB [Suspect]
     Active Substance: USTEKINUMAB
     Indication: Psoriatic arthropathy
     Dosage: UNK
     Route: 058
  214. USTEKINUMAB [Suspect]
     Active Substance: USTEKINUMAB
     Indication: Product used for unknown indication
  215. SIMPONI [Suspect]
     Active Substance: GOLIMUMAB
     Indication: Psoriatic arthropathy
     Dosage: UNK
     Route: 058
  216. SIMPONI [Suspect]
     Active Substance: GOLIMUMAB
     Indication: Product used for unknown indication
  217. ALENDRONIC ACID [Suspect]
     Active Substance: ALENDRONIC ACID
     Indication: Product used for unknown indication
     Dosage: 70 MILLIGRAM, Q.WK.
     Route: 058
  218. GOLD [Suspect]
     Active Substance: GOLD
     Indication: Product used for unknown indication
     Dosage: UNK
     Route: 065
  219. GOLD SODIUM THIOMALATE [Suspect]
     Active Substance: GOLD SODIUM THIOMALATE
     Indication: Product used for unknown indication
     Dosage: UNK
     Route: 065
  220. INFLIXIMAB [Suspect]
     Active Substance: INFLIXIMAB
     Indication: Rheumatoid arthritis
     Dosage: 300 MILLIGRAM
     Route: 048
  221. INFLIXIMAB [Suspect]
     Active Substance: INFLIXIMAB
     Indication: Psoriatic arthropathy
     Dosage: UNK
     Route: 048
  222. INFLIXIMAB [Suspect]
     Active Substance: INFLIXIMAB
     Dosage: 400 UNK
     Route: 065
  223. GOLIMUMAB [Suspect]
     Active Substance: GOLIMUMAB
     Indication: Psoriatic arthropathy
     Dosage: UNK
     Route: 058
  224. ORENCIA [Suspect]
     Active Substance: ABATACEPT
     Indication: Rheumatoid arthritis
     Dosage: UNK
     Route: 065
  225. ORENCIA [Suspect]
     Active Substance: ABATACEPT
     Indication: Psoriatic arthropathy
     Dosage: 120 MILLIGRAM, QD
     Route: 048
  226. ORENCIA [Suspect]
     Active Substance: ABATACEPT
     Indication: Psoriasis
     Dosage: 60 MILLIGRAM, QD
     Route: 048
  227. ACTONEL [Concomitant]
     Active Substance: RISEDRONATE SODIUM
     Indication: Product used for unknown indication
     Dosage: UNK
     Route: 065
  228. CANNABIS SATIVA SUBSP. INDICA TOP [Concomitant]
     Active Substance: CANNABIS SATIVA SUBSP. INDICA TOP
     Indication: Product used for unknown indication
     Dosage: UNK
     Route: 065
  229. CHOLECALCIFEROL [Concomitant]
     Active Substance: CHOLECALCIFEROL
     Indication: Product used for unknown indication
     Dosage: UNK
     Route: 048
  230. COLCHICINE [Concomitant]
     Active Substance: COLCHICINE
     Indication: Product used for unknown indication
     Dosage: 6 MILLIGRAM
     Route: 048
  231. COLCHICINE [Concomitant]
     Active Substance: COLCHICINE
     Dosage: 0.6 MILLIGRAM
     Route: 048
  232. DEXILANT [Concomitant]
     Active Substance: DEXLANSOPRAZOLE
     Indication: Product used for unknown indication
     Dosage: UNK
     Route: 065
  233. FEBUXOSTAT [Concomitant]
     Active Substance: FEBUXOSTAT
     Indication: Product used for unknown indication
     Dosage: 80 MILLIGRAM
     Route: 065
  234. FEBUXOSTAT [Concomitant]
     Active Substance: FEBUXOSTAT
     Dosage: 160 MILLIGRAM, QD
     Route: 065
  235. FOLIC ACID [Concomitant]
     Active Substance: FOLIC ACID
     Indication: Product used for unknown indication
     Dosage: UNK
     Route: 065
  236. FOLIC ACID [Concomitant]
     Active Substance: FOLIC ACID
     Dosage: UNK
     Route: 065
  237. GRAVOL [Concomitant]
     Active Substance: DIMENHYDRINATE
     Indication: Product used for unknown indication
     Dosage: UNK
     Route: 065
  238. METHOTREXATE [Concomitant]
     Active Substance: METHOTREXATE
     Indication: Product used for unknown indication
     Dosage: UNK UNK, Q.WK.
     Route: 048
  239. NITRAZEPAM [Concomitant]
     Active Substance: NITRAZEPAM
     Indication: Product used for unknown indication
     Dosage: 5 MILLIGRAM
     Route: 065
  240. NAPROXEN [Concomitant]
     Active Substance: NAPROXEN
     Indication: Product used for unknown indication
     Dosage: 500 MILLIGRAM
     Route: 065
  241. NITRAZEPAM [Concomitant]
     Active Substance: NITRAZEPAM
     Indication: Product used for unknown indication
     Dosage: 5 MILLIGRAM
     Route: 048
  242. NITRAZEPAM [Concomitant]
     Active Substance: NITRAZEPAM
     Dosage: UNK
     Route: 048
  243. OXYCODONE [Concomitant]
     Active Substance: OXYCODONE
     Indication: Product used for unknown indication
     Dosage: 40 MILLIGRAM
     Route: 065
  244. OXYCODONE [Concomitant]
     Active Substance: OXYCODONE
     Dosage: 10 MILLIGRAM
     Route: 065
  245. OXYCODONE [Concomitant]
     Active Substance: OXYCODONE
     Indication: Product used for unknown indication
     Dosage: 40 MILLIGRAM
     Route: 065
  246. OXYCODONE [Concomitant]
     Active Substance: OXYCODONE
     Dosage: 10 MILLIGRAM
     Route: 065
  247. PREDNISONE [Concomitant]
     Active Substance: PREDNISONE
     Indication: Product used for unknown indication
     Dosage: UNK
     Route: 065
  248. RISEDRONATE SODIUM [Concomitant]
     Active Substance: RISEDRONATE SODIUM
     Indication: Product used for unknown indication
     Dosage: UNK
     Route: 065
  249. RISEDRONATE SODIUM [Concomitant]
     Active Substance: RISEDRONATE SODIUM
     Dosage: 35 MILLIGRAM, Q.WK.
     Route: 048
  250. ULORIC [Concomitant]
     Active Substance: FEBUXOSTAT
     Indication: Product used for unknown indication
     Dosage: 80 MILLIGRAM
     Route: 065
  251. ULORIC [Concomitant]
     Active Substance: FEBUXOSTAT
     Dosage: 80 MILLIGRAM
     Route: 048
  252. ULORIC [Concomitant]
     Active Substance: FEBUXOSTAT
     Dosage: 8 MILLIGRAM
     Route: 048
  253. ULORIC [Concomitant]
     Active Substance: FEBUXOSTAT
     Dosage: 160 MILLIGRAM, QD
     Route: 048
  254. ULORIC [Concomitant]
     Active Substance: FEBUXOSTAT
     Dosage: UNK
     Route: 065
  255. ULORIC [Concomitant]
     Active Substance: FEBUXOSTAT
     Dosage: 160 MILLIGRAM, QD
     Route: 065
  256. XELJANZ [Concomitant]
     Active Substance: TOFACITINIB CITRATE
     Indication: Product used for unknown indication
     Dosage: UNK
     Route: 065
  257. BENADRYL [Concomitant]
     Active Substance: DIPHENHYDRAMINE HYDROCHLORIDE
     Indication: Product used for unknown indication
     Dosage: UNK
     Route: 065
  258. OXYCODONE HYDROCHLORIDE [Concomitant]
     Active Substance: OXYCODONE HYDROCHLORIDE
     Indication: Product used for unknown indication
     Dosage: 10 MILLIGRAM
     Route: 065
  259. OXYCODONE HYDROCHLORIDE [Concomitant]
     Active Substance: OXYCODONE HYDROCHLORIDE
     Dosage: 40 MILLIGRAM
     Route: 065
  260. OXYCODONE HYDROCHLORIDE [Concomitant]
     Active Substance: OXYCODONE HYDROCHLORIDE
     Dosage: UNK
     Route: 065

REACTIONS (77)
  - Arthritis [Not Recovered/Not Resolved]
  - Arthropathy [Not Recovered/Not Resolved]
  - Basal cell carcinoma [Not Recovered/Not Resolved]
  - Blood creatinine increased [Not Recovered/Not Resolved]
  - Blood parathyroid hormone decreased [Not Recovered/Not Resolved]
  - C-reactive protein abnormal [Not Recovered/Not Resolved]
  - C-reactive protein increased [Not Recovered/Not Resolved]
  - Drug eruption [Not Recovered/Not Resolved]
  - Drug intolerance [Not Recovered/Not Resolved]
  - Enthesopathy [Not Recovered/Not Resolved]
  - Fear of injection [Not Recovered/Not Resolved]
  - Erythema [Not Recovered/Not Resolved]
  - General physical health deterioration [Not Recovered/Not Resolved]
  - Granuloma [Not Recovered/Not Resolved]
  - Granuloma skin [Not Recovered/Not Resolved]
  - Hypercalcaemia [Not Recovered/Not Resolved]
  - Infusion related reaction [Not Recovered/Not Resolved]
  - Joint injury [Not Recovered/Not Resolved]
  - Loss of personal independence in daily activities [Not Recovered/Not Resolved]
  - Musculoskeletal stiffness [Not Recovered/Not Resolved]
  - Off label use [Not Recovered/Not Resolved]
  - Panniculitis [Not Recovered/Not Resolved]
  - Peripheral swelling [Not Recovered/Not Resolved]
  - Product use issue [Not Recovered/Not Resolved]
  - Psoriatic arthropathy [Not Recovered/Not Resolved]
  - Red blood cell sedimentation rate [Not Recovered/Not Resolved]
  - Synovitis [Not Recovered/Not Resolved]
  - Red blood cell sedimentation rate increased [Not Recovered/Not Resolved]
  - Rash pruritic [Not Recovered/Not Resolved]
  - Inflammation [Not Recovered/Not Resolved]
  - Skin necrosis [Not Recovered/Not Resolved]
  - Fatigue [Not Recovered/Not Resolved]
  - Rheumatoid nodule [Not Recovered/Not Resolved]
  - Skin ulcer [Not Recovered/Not Resolved]
  - Insomnia [Not Recovered/Not Resolved]
  - Joint swelling [Not Recovered/Not Resolved]
  - Tendonitis [Not Recovered/Not Resolved]
  - Drug tolerance [Unknown]
  - Overdose [Unknown]
  - Gastric disorder [Unknown]
  - Tenosynovitis [Not Recovered/Not Resolved]
  - Tongue disorder [Not Recovered/Not Resolved]
  - Ulcer [Not Recovered/Not Resolved]
  - Pain [Not Recovered/Not Resolved]
  - Rheumatoid lung [Unknown]
  - Mobility decreased [Unknown]
  - Adverse event [Unknown]
  - Urticaria [Not Recovered/Not Resolved]
  - Condition aggravated [Unknown]
  - Drug tolerance decreased [Unknown]
  - Rheumatoid arthritis [Not Recovered/Not Resolved]
  - Contraindicated product administered [Not Recovered/Not Resolved]
  - Arthralgia [Not Recovered/Not Resolved]
  - Malaise [Unknown]
  - Musculoskeletal disorder [Unknown]
  - Abdominal discomfort [Not Recovered/Not Resolved]
  - Rash [Not Recovered/Not Resolved]
  - Blood pressure systolic increased [Not Recovered/Not Resolved]
  - Nausea [Not Recovered/Not Resolved]
  - Headache [Not Recovered/Not Resolved]
  - Diarrhoea [Not Recovered/Not Resolved]
  - Alanine aminotransferase abnormal [Not Recovered/Not Resolved]
  - Decreased appetite [Not Recovered/Not Resolved]
  - Alanine aminotransferase increased [Not Recovered/Not Resolved]
  - Drug hypersensitivity [Not Recovered/Not Resolved]
  - Aspartate aminotransferase increased [Not Recovered/Not Resolved]
  - Pulmonary fibrosis [Unknown]
  - Hypersensitivity [Unknown]
  - Alopecia [Unknown]
  - Hypertension [Unknown]
  - Osteomyelitis [Unknown]
  - Therapy non-responder [Not Recovered/Not Resolved]
  - Treatment failure [Not Recovered/Not Resolved]
  - Therapeutic product effect decreased [Unknown]
  - Therapeutic product effect incomplete [Unknown]
  - Therapeutic response decreased [Unknown]
  - Drug ineffective [Not Recovered/Not Resolved]
